FAERS Safety Report 5394607-5 (Version None)
Quarter: 2007Q3

REPORT INFORMATION
  Report Type: 
  Country: None (occurrence: None)
  Receive Date: 20070723
  Receipt Date: 20070713
  Transmission Date: 20080115
  Serious: Yes (Hospitalization)
  Sender: FDA-Public Use
  Company Number: TR-ABBOTT-07P-161-0372738-00

PATIENT
  Sex: Female
  Weight: 67 kg

DRUGS (1)
  1. REDUCTIL 15MG [Suspect]
     Indication: WEIGHT CONTROL
     Route: 048
     Dates: start: 20060601, end: 20060901

REACTIONS (1)
  - NEOPLASM [None]
